FAERS Safety Report 4556981-9 (Version None)
Quarter: 2005Q1

REPORT INFORMATION
  Report Type: 
  Country: None (occurrence: None)
  Receive Date: 20050118
  Receipt Date: 20041231
  Transmission Date: 20050727
  Serious: Yes (Hospitalization)
  Sender: FDA-Public Use
  Company Number: T04-CHN-07597-01

PATIENT
  Age: 78 Year
  Sex: Male
  Weight: 69 kg

DRUGS (7)
  1. MEMANTINE HCL [Suspect]
     Indication: DEMENTIA ALZHEIMER'S TYPE
     Dosage: 10 MG BID PO
     Route: 048
     Dates: start: 20040602
  2. MECLOFENOXATE [Concomitant]
  3. HYDERGINE [Concomitant]
  4. PIRACETAM [Concomitant]
  5. DAN SHEN [Concomitant]
  6. XUE SAI TONG [Concomitant]
  7. M-ASA (ACETYLSALICYLIC ACID) [Concomitant]

REACTIONS (7)
  - APATHY [None]
  - ASTHENIA [None]
  - CEREBRAL INFARCTION [None]
  - FAECAL INCONTINENCE [None]
  - LACUNAR INFARCTION [None]
  - LEUKOARAIOSIS [None]
  - URINARY INCONTINENCE [None]
